FAERS Safety Report 12876967 (Version 2)
Quarter: 2017Q2

REPORT INFORMATION
  Report Type: Spontaneous
  Country: JP (occurrence: JP)
  Receive Date: 20161024
  Receipt Date: 20170404
  Transmission Date: 20170830
  Serious: Yes (Other)
  Sender: FDA-Public Use
  Company Number: JP-GLAXOSMITHKLINE-JP2016JPN152325

PATIENT
  Age: 38 Year
  Sex: Female

DRUGS (2)
  1. EPOPROSTENOL. [Suspect]
     Active Substance: EPOPROSTENOL
     Indication: PULMONARY ARTERIAL HYPERTENSION
     Dosage: UNK
     Route: 042
  2. EPOPROSTENOL. [Suspect]
     Active Substance: EPOPROSTENOL
     Dosage: UNK
     Route: 042

REACTIONS (12)
  - Hypopituitarism [Recovering/Resolving]
  - Rash [Recovering/Resolving]
  - Abdominal distension [Recovering/Resolving]
  - Decreased appetite [Recovering/Resolving]
  - Splenomegaly [Recovering/Resolving]
  - Hyperthyroidism [Recovering/Resolving]
  - Adrenal insufficiency [Recovering/Resolving]
  - Ascites [Recovering/Resolving]
  - Malaise [Recovering/Resolving]
  - Gastrointestinal oedema [Recovering/Resolving]
  - Pyrexia [Recovering/Resolving]
  - Amenorrhoea [Recovering/Resolving]
